FAERS Safety Report 8428889-X (Version None)
Quarter: 2012Q2

REPORT INFORMATION
  Report Type: 
  Country: None (occurrence: None)
  Receive Date: 20120612
  Receipt Date: 20120608
  Transmission Date: 20120825
  Serious: Yes (Other)
  Sender: FDA-Public Use
  Company Number: US-PFIZER INC-2012138771

PATIENT
  Sex: Male
  Weight: 97.506 kg

DRUGS (1)
  1. TIKOSYN [Suspect]
     Indication: HEART RATE IRREGULAR
     Dosage: 0.5 MG, 2X/DAY
     Route: 048
     Dates: start: 20110501

REACTIONS (1)
  - TOOTH INFECTION [None]
